FAERS Safety Report 21122329 (Version 1)
Quarter: 2022Q3

REPORT INFORMATION
  Report Type: Spontaneous
  Country: PL (occurrence: PL)
  Receive Date: 20220723
  Receipt Date: 20220723
  Transmission Date: 20221027
  Serious: Yes (Hospitalization, Other)
  Sender: FDA-Public Use
  Company Number: PL-002147023-NVSC2022PL148813

PATIENT
  Age: 69 Year
  Sex: Female
  Weight: 103 kg

DRUGS (4)
  1. LETROZOLE [Suspect]
     Active Substance: LETROZOLE
     Indication: Product used for unknown indication
     Dosage: 2.5 MILLIGRAM, ONCE A DAY  (1X1 TABLET)
     Route: 065
     Dates: start: 20210514
  2. ZOLEDRONIC ACID [Suspect]
     Active Substance: ZOLEDRONIC ACID
     Indication: Product used for unknown indication
     Dosage: 1 DOSAGE FORM, Q4W (1X EVERY 4 WEEKS)
     Route: 065
  3. RIBOCICLIB [Suspect]
     Active Substance: RIBOCICLIB
     Indication: Product used for unknown indication
     Dosage: 400 MILLIGRAM, ONCE A DAY
     Route: 065
  4. RIBOCICLIB [Suspect]
     Active Substance: RIBOCICLIB
     Dosage: 600 MG (DAILY FOR 21 DAYS, CYCLE EVERY 28 DAYS)
     Route: 065
     Dates: start: 20210514

REACTIONS (6)
  - Dyspnoea [Recovering/Resolving]
  - Neutropenia [Unknown]
  - Asthenia [Unknown]
  - Blood creatinine decreased [Unknown]
  - Headache [Unknown]
  - Bone pain [Unknown]
